FAERS Safety Report 14826379 (Version 2)
Quarter: 2018Q2

REPORT INFORMATION
  Report Type: Report from Study
  Country: None (occurrence: ES)
  Receive Date: 20180430
  Receipt Date: 20180501
  Transmission Date: 20180711
  Serious: Yes (Hospitalization, Other)
  Sender: FDA-Public Use
  Company Number: ES-ABBVIE-18K-144-2334994-00

PATIENT
  Age: 74 Year
  Sex: Female
  Weight: 60 kg

DRUGS (1)
  1. DUODOPA [Suspect]
     Active Substance: CARBIDOPA\LEVODOPA
     Indication: PARKINSON^S DISEASE
     Route: 050
     Dates: start: 20180424

REACTIONS (7)
  - Gastric ulcer haemorrhage [Recovered/Resolved]
  - Discomfort [Not Recovered/Not Resolved]
  - Procedural complication [Unknown]
  - Abdominal distension [Unknown]
  - Gastric ulcer perforation [Recovering/Resolving]
  - Hypophagia [Not Recovered/Not Resolved]
  - Medical device site ulcer [Recovered/Resolved]

NARRATIVE: CASE EVENT DATE: 20180424
